FAERS Safety Report 23430975 (Version 1)
Quarter: 2024Q1

REPORT INFORMATION
  Report Type: Spontaneous
  Country: GB (occurrence: GB)
  Receive Date: 20240123
  Receipt Date: 20240123
  Transmission Date: 20240410
  Serious: Yes (Other)
  Sender: FDA-Public Use
  Company Number: None

PATIENT
  Age: 71 Year
  Weight: 99 kg

DRUGS (21)
  1. ALBUTEROL [Suspect]
     Active Substance: ALBUTEROL
     Indication: Product used for unknown indication
     Dosage: TIME INTERVAL: AS NECESSARY
     Route: 065
     Dates: start: 20220712, end: 20220914
  2. ACETAMINOPHEN [Concomitant]
     Active Substance: ACETAMINOPHEN
     Indication: Product used for unknown indication
     Dosage: TAKE 2, 4 TIMES/DAY, AS PER PALLIATIVE NURSE
     Dates: start: 20221118
  3. CHLORPHENIRAMINE MALEATE [Concomitant]
     Active Substance: CHLORPHENIRAMINE MALEATE
     Indication: Product used for unknown indication
     Dosage: TIME INTERVAL: 0.33333333 DAYS
     Dates: start: 20221017, end: 20221017
  4. POLYETHYLENE GLYCOL 3350\POTASSIUM CHLORIDE\SODIUM BICARBONATE\SODIUM [Concomitant]
     Active Substance: POLYETHYLENE GLYCOL 3350\POTASSIUM CHLORIDE\SODIUM BICARBONATE\SODIUM CHLORIDE
     Indication: Product used for unknown indication
     Dosage: TIME INTERVAL: AS NECESSARY
     Dates: start: 20221024
  5. VENTOLIN [Concomitant]
     Active Substance: ALBUTEROL SULFATE
     Indication: Product used for unknown indication
     Dosage: TIME INTERVAL: AS NECESSARY
     Dates: start: 20220914
  6. DIAZEPAM [Concomitant]
     Active Substance: DIAZEPAM
     Indication: Product used for unknown indication
     Dosage: ONE OR TWO TABLETS, ONCE IN THE MORNING AND OR ...
     Dates: start: 20221004, end: 20221011
  7. ZOPICLONE [Concomitant]
     Active Substance: ZOPICLONE
     Indication: Product used for unknown indication
     Dosage: TIME INTERVAL: AS NECESSARY: AT NIGHT AS NEEDED
     Dates: start: 20221024, end: 20221107
  8. MORPHINE SULFATE [Concomitant]
     Active Substance: MORPHINE SULFATE
     Indication: Product used for unknown indication
     Dosage: 2.5MLS TO 5MLS, UPTO 4 TIMES DAILY, NOT MORE THAN 4 HOURLY
     Dates: start: 20221011, end: 20221025
  9. CREON [Concomitant]
     Active Substance: PANCRELIPASE AMYLASE\PANCRELIPASE LIPASE\PANCRELIPASE PROTEASE
     Indication: Product used for unknown indication
     Dosage: USE AS DIRECTED
     Dates: start: 20221115
  10. BISACODYL [Concomitant]
     Active Substance: BISACODYL
     Indication: Product used for unknown indication
     Dosage: TAKE ONE OR TWO AT NIGHT
     Dates: start: 20220926, end: 20221026
  11. ALLOPURINOL [Concomitant]
     Active Substance: ALLOPURINOL
     Indication: Product used for unknown indication
     Dates: start: 20210315
  12. SERETIDE [Concomitant]
     Active Substance: FLUTICASONE PROPIONATE\SALMETEROL XINAFOATE
     Indication: Product used for unknown indication
     Dates: start: 20220629
  13. OXYCODONE HYDROCHLORIDE [Concomitant]
     Active Substance: OXYCODONE HYDROCHLORIDE
     Indication: Product used for unknown indication
     Dosage: EVERY ONE HOUR AS REQUIRED...
     Dates: start: 20221114
  14. CODEINE PHOSPHATE [Concomitant]
     Active Substance: CODEINE PHOSPHATE
     Indication: Product used for unknown indication
     Dosage: TAKE ONE UP TO 4 TIMES/DAY AS NEEDED
     Dates: start: 20220912, end: 20221010
  15. ALBUTEROL [Concomitant]
     Active Substance: ALBUTEROL
     Indication: Product used for unknown indication
     Dates: start: 20220914
  16. SODIUM PICOSULFATE [Concomitant]
     Active Substance: SODIUM PICOSULFATE
     Indication: Product used for unknown indication
     Dosage: TIME INTERVAL: AS NECESSARY: 5 TO 10MLS AT NIGHT, AS NEEDED
     Dates: start: 20221118
  17. MORPHINE SULFATE [Concomitant]
     Active Substance: MORPHINE SULFATE
     Indication: Product used for unknown indication
     Dates: start: 20221014, end: 20221111
  18. FEXOFENADINE [Concomitant]
     Active Substance: FEXOFENADINE HYDROCHLORIDE
     Indication: Product used for unknown indication
     Dates: start: 20221017, end: 20221116
  19. NOVORAPID [Concomitant]
     Active Substance: INSULIN ASPART
     Dosage: USE AS DIRECTED BY HOSPITAL
     Dates: start: 20220922
  20. TOUJEO [Concomitant]
     Active Substance: INSULIN GLARGINE
     Indication: Product used for unknown indication
     Dosage: USE AS DIRECTED BY HOSPITAL
     Dates: start: 20220922
  21. GLICLAZIDE [Concomitant]
     Active Substance: GLICLAZIDE
     Indication: Product used for unknown indication
     Dates: start: 20220902

REACTIONS (2)
  - Mouth ulceration [Recovered/Resolved]
  - Oral mucosal blistering [Unknown]

NARRATIVE: CASE EVENT DATE: 20221118
